FAERS Safety Report 6100265-4 (Version None)
Quarter: 2009Q1

REPORT INFORMATION
  Report Type: 
  Country: None (occurrence: None)
  Receive Date: 20090303
  Receipt Date: 20090219
  Transmission Date: 20090719
  Serious: Yes (Other)
  Sender: FDA-Public Use
  Company Number: HR-PFIZER INC-2009173082

PATIENT

DRUGS (1)
  1. VFEND [Suspect]
     Indication: BRONCHOPULMONARY ASPERGILLOSIS
     Dosage: UNIT DOSE: UNK; FREQUENCY: UNK, UNK;
     Dates: start: 20081101

REACTIONS (2)
  - DISORIENTATION [None]
  - SPEECH DISORDER [None]
